FAERS Safety Report 7136191-1 (Version None)
Quarter: 2010Q4

REPORT INFORMATION
  Report Type: 
  Country: None (occurrence: None)
  Receive Date: 20101206
  Receipt Date: 20101124
  Transmission Date: 20110411
  Serious: Yes (Other)
  Sender: FDA-Public Use
  Company Number: US-BIOGENIDEC-2010BI036272

PATIENT
  Age: 49 Year
  Sex: Female

DRUGS (6)
  1. TYSABRI [Suspect]
     Indication: MULTIPLE SCLEROSIS
     Route: 042
     Dates: start: 20100216
  2. CLONAZEPAM [Concomitant]
  3. LORAZEPAM [Concomitant]
  4. NEXIUM [Concomitant]
  5. BACLOFEN [Concomitant]
  6. NORTRIPTYLINE HCL [Concomitant]

REACTIONS (6)
  - EPILEPSY [None]
  - FATIGUE [None]
  - INSOMNIA [None]
  - OEDEMA PERIPHERAL [None]
  - PAIN IN EXTREMITY [None]
  - PRURITUS [None]
